FAERS Safety Report 12578067 (Version 4)
Quarter: 2016Q3

REPORT INFORMATION
  Report Type: Spontaneous
  Country: US (occurrence: US)
  Receive Date: 20160721
  Receipt Date: 20160927
  Transmission Date: 20161109
  Serious: No
  Sender: FDA-Public Use
  Company Number: US-BEH-2016062997

PATIENT
  Sex: Female
  Weight: 65.77 kg

DRUGS (32)
  1. HIZENTRA [Suspect]
     Active Substance: HUMAN IMMUNOGLOBULIN G
     Dosage: 2 G, UNK
     Route: 058
  2. CETIRIZINE [Concomitant]
     Active Substance: CETIRIZINE HYDROCHLORIDE
  3. SINGULAIR [Concomitant]
     Active Substance: MONTELUKAST SODIUM
  4. HIZENTRA [Suspect]
     Active Substance: HUMAN IMMUNOGLOBULIN G
     Dosage: 4 G, UNK
     Route: 058
  5. EPIPEN [Concomitant]
     Active Substance: EPINEPHRINE
  6. PATADAY [Concomitant]
     Active Substance: OLOPATADINE HYDROCHLORIDE
  7. HIZENTRA [Suspect]
     Active Substance: HUMAN IMMUNOGLOBULIN G
     Dosage: UNK
     Route: 058
  8. HIZENTRA [Suspect]
     Active Substance: HUMAN IMMUNOGLOBULIN G
     Dosage: UNK
     Route: 058
  9. HIZENTRA [Suspect]
     Active Substance: HUMAN IMMUNOGLOBULIN G
     Dosage: 7 G, QW
     Route: 058
     Dates: start: 20160620
  10. ACETAMINOPHEN. [Concomitant]
     Active Substance: ACETAMINOPHEN
  11. CYMBALTA [Concomitant]
     Active Substance: DULOXETINE HYDROCHLORIDE
  12. THEOPHYLLINE [Concomitant]
     Active Substance: THEOPHYLLINE ANHYDROUS
  13. LORATADINE. [Concomitant]
     Active Substance: LORATADINE
  14. SYMBICORT [Concomitant]
     Active Substance: BUDESONIDE\FORMOTEROL FUMARATE DIHYDRATE
  15. DIPHENHYDRAMINE. [Concomitant]
     Active Substance: DIPHENHYDRAMINE
  16. LIDOCAINE/PRILOCAINE [Concomitant]
     Active Substance: LIDOCAINE\PRILOCAINE
  17. FLUTICASONE [Concomitant]
     Active Substance: FLUTICASONE\FLUTICASONE PROPIONATE
  18. SIMVASTATIN. [Concomitant]
     Active Substance: SIMVASTATIN
  19. IPRATROPIUM BR [Concomitant]
  20. HIZENTRA [Suspect]
     Active Substance: HUMAN IMMUNOGLOBULIN G
     Indication: SELECTIVE IGG SUBCLASS DEFICIENCY
     Dosage: UNK
     Route: 058
  21. HIZENTRA [Suspect]
     Active Substance: HUMAN IMMUNOGLOBULIN G
     Dosage: 1 G, UNK
     Route: 058
  22. HYDROXYZINE [Concomitant]
     Active Substance: HYDROXYZINE\HYDROXYZINE HYDROCHLORIDE
  23. CALCIUM + D [Concomitant]
     Active Substance: CALCIUM\VITAMIN D
  24. TRAMADOL. [Concomitant]
     Active Substance: TRAMADOL
  25. VENTOLIN [Concomitant]
     Active Substance: ALBUTEROL SULFATE
  26. CYCLOBENZAPRINE [Concomitant]
     Active Substance: CYCLOBENZAPRINE
  27. ASTEPRO [Concomitant]
     Active Substance: AZELASTINE HYDROCHLORIDE
  28. OMEPRAZOLE. [Concomitant]
     Active Substance: OMEPRAZOLE
  29. XOPENEX [Concomitant]
     Active Substance: LEVALBUTEROL HYDROCHLORIDE
  30. SPIRIVA [Concomitant]
     Active Substance: TIOTROPIUM BROMIDE MONOHYDRATE
  31. GEODON [Concomitant]
     Active Substance: ZIPRASIDONE HYDROCHLORIDE\ZIPRASIDONE MESYLATE
  32. VITAMIN D [Concomitant]
     Active Substance: CHOLECALCIFEROL

REACTIONS (1)
  - Device use error [Recovered/Resolved]
